FAERS Safety Report 7393148-3 (Version None)
Quarter: 2011Q2

REPORT INFORMATION
  Report Type: 
  Country: None (occurrence: None)
  Receive Date: 20110404
  Receipt Date: 20110324
  Transmission Date: 20111010
  Serious: Yes (Death)
  Sender: FDA-Public Use
  Company Number: JP-AMGEN-JPNCT2010003783

PATIENT
  Age: 43 Year
  Sex: Male
  Weight: 50 kg

DRUGS (13)
  1. ANTIHISTAMINES [Concomitant]
     Indication: PROPHYLAXIS
     Route: 065
  2. ORGARAN [Concomitant]
     Route: 042
  3. MORPHINE HYDROCHLORIDE INJECTION [Concomitant]
     Route: 042
  4. PRIMPERAN TAB [Concomitant]
     Route: 048
  5. PANITUMUMAB [Suspect]
     Indication: COLORECTAL CANCER
     Dosage: UNK, Q2WK
     Route: 041
     Dates: start: 20100927, end: 20100927
  6. LOXOPROFEN [Concomitant]
     Route: 048
  7. CORTICOSTEROIDS [Concomitant]
     Indication: PROPHYLAXIS
     Route: 065
  8. RECOMODULIN [Concomitant]
     Route: 042
  9. FINIBAX [Concomitant]
     Route: 042
  10. NOVAMIN [Concomitant]
     Route: 048
  11. SOL-MELCORT [Concomitant]
     Route: 042
  12. CALBLOCK [Concomitant]
     Route: 048
  13. MAGLAX [Concomitant]
     Route: 048

REACTIONS (1)
  - COLORECTAL CANCER [None]
